FAERS Safety Report 20947113 (Version 1)
Quarter: 2022Q2

REPORT INFORMATION
  Report Type: Report from Study
  Country: NO (occurrence: NO)
  Receive Date: 20220610
  Receipt Date: 20220610
  Transmission Date: 20220721
  Serious: Yes (Other)
  Sender: FDA-Public Use
  Company Number: NO-GLAXOSMITHKLINE-NOCH2022GSK020350

PATIENT

DRUGS (1)
  1. NICOTINE [Suspect]
     Active Substance: NICOTINE
     Indication: Seizure
     Dosage: 14 MG, QD
     Route: 062

REACTIONS (3)
  - Angioedema [Unknown]
  - Drug hypersensitivity [Unknown]
  - Urticaria [Unknown]
